FAERS Safety Report 10335114 (Version 1)
Quarter: 2014Q3

REPORT INFORMATION
  Report Type: Spontaneous
  Country: US (occurrence: US)
  Receive Date: 20140723
  Receipt Date: 20140723
  Transmission Date: 20150326
  Serious: Yes (Other)
  Sender: FDA-Public Use
  Company Number: US-AMGEN-USASP2014053884

PATIENT
  Sex: Male

DRUGS (7)
  1. ETOPOSIDE. [Concomitant]
     Active Substance: ETOPOSIDE
     Indication: LUNG NEOPLASM
     Dosage: UNK
     Dates: end: 20140527
  2. CARBOPLATIN. [Concomitant]
     Active Substance: CARBOPLATIN
     Indication: LUNG NEOPLASM
     Dosage: UNK
     Dates: end: 20140527
  3. NEUPOGEN [Suspect]
     Active Substance: FILGRASTIM
     Indication: PROPHYLAXIS
     Dosage: 300 MCG, DAILY
     Route: 065
     Dates: start: 20140509
  4. DOXORUBICIN [Concomitant]
     Active Substance: DOXORUBICIN
     Indication: LUNG NEOPLASM
     Dosage: UNK
     Dates: start: 201406
  5. VINCRISTINE [Concomitant]
     Active Substance: VINCRISTINE
     Indication: LUNG NEOPLASM
     Dosage: UNK
     Dates: start: 201406
  6. CYCLOPHOSPHAMIDE. [Concomitant]
     Active Substance: CYCLOPHOSPHAMIDE
     Indication: LUNG NEOPLASM
     Dosage: UNK
     Dates: start: 201406
  7. CISPLATIN. [Concomitant]
     Active Substance: CISPLATIN
     Indication: LUNG NEOPLASM
     Dosage: UNK

REACTIONS (4)
  - Therapeutic response delayed [Unknown]
  - Neutrophil count abnormal [Unknown]
  - Anaemia [Unknown]
  - Inappropriate schedule of drug administration [Unknown]

NARRATIVE: CASE EVENT DATE: 20140514
